FAERS Safety Report 5772230-8 (Version None)
Quarter: 2008Q2

REPORT INFORMATION
  Report Type: 
  Country: None (occurrence: None)
  Receive Date: 20080610
  Receipt Date: 20080528
  Transmission Date: 20081010
  Serious: Yes (Other)
  Sender: FDA-Public Use
  Company Number: US023667

PATIENT
  Age: 63 Year
  Sex: Female
  Weight: 122.4712 kg

DRUGS (10)
  1. PROVIGIL [Suspect]
     Indication: CHRONIC FATIGUE SYNDROME
     Dosage: 200 MG QD ORAL
     Route: 048
     Dates: start: 20070401, end: 20080401
  2. PROVIGIL [Suspect]
     Indication: FIBROMYALGIA
     Dosage: 200 MG QD ORAL
     Route: 048
     Dates: start: 20070401, end: 20080401
  3. CELEBREX [Concomitant]
  4. SYNTHROID [Concomitant]
  5. OXYCODONE HCL [Concomitant]
  6. NEURONTIN [Concomitant]
  7. CYMBALTA [Concomitant]
  8. XANAX [Concomitant]
  9. INDERAL /00030001/ [Concomitant]
  10. TRAMADOL HCL [Concomitant]

REACTIONS (24)
  - BACK PAIN [None]
  - DEREALISATION [None]
  - DIARRHOEA [None]
  - EYE DISORDER [None]
  - EYE SWELLING [None]
  - GASTROINTESTINAL NECROSIS [None]
  - HALLUCINATION [None]
  - HERPES ZOSTER [None]
  - HYPERSOMNIA [None]
  - IMPAIRED SELF-CARE [None]
  - INCONTINENCE [None]
  - LIP SWELLING [None]
  - MANIA [None]
  - MUCOSAL NECROSIS [None]
  - NERVOUSNESS [None]
  - NO THERAPEUTIC RESPONSE [None]
  - PAIN [None]
  - PHOTOPSIA [None]
  - PROCTALGIA [None]
  - PSYCHIATRIC SYMPTOM [None]
  - SKIN EXFOLIATION [None]
  - SKIN NECROSIS [None]
  - STOMATITIS NECROTISING [None]
  - TINNITUS [None]
